FAERS Safety Report 10209329 (Version 1)
Quarter: 2014Q2

REPORT INFORMATION
  Report Type: Spontaneous
  Country: US (occurrence: US)
  Receive Date: 20140531
  Receipt Date: 20140531
  Transmission Date: 20141212
  Serious: No
  Sender: FDA-Public Use
  Company Number: US-009507513-1405USA014471

PATIENT
  Age: 22 Year
  Sex: Female

DRUGS (1)
  1. NUVARING [Suspect]
     Dosage: DOSE/FREQUENCY: 3 WEEKS IN, 1 WEEK OUT, 1 RING
     Route: 067
     Dates: start: 2011

REACTIONS (1)
  - Inappropriate schedule of drug administration [Unknown]
